FAERS Safety Report 9120819 (Version 1)
Quarter: 2013Q1

REPORT INFORMATION
  Report Type: Report from Study
  Country: AR (occurrence: AR)
  Receive Date: 20130226
  Receipt Date: 20130226
  Transmission Date: 20140127
  Serious: Yes (Life-Threatening, Hospitalization)
  Sender: FDA-Public Use
  Company Number: AR-ABBOTT-13P-007-1054733-00

PATIENT
  Age: 67 Year
  Sex: Female

DRUGS (3)
  1. HUMIRA [Suspect]
     Indication: RHEUMATOID ARTHRITIS
     Dates: start: 20101014
  2. INSULIN [Concomitant]
     Indication: DIABETES MELLITUS
  3. INSULIN [Concomitant]

REACTIONS (1)
  - Diabetic coma [Recovering/Resolving]
